FAERS Safety Report 15115609 (Version 2)
Quarter: 2018Q3

REPORT INFORMATION
  Report Type: Spontaneous
  Country: US (occurrence: US)
  Receive Date: 20180706
  Receipt Date: 20180818
  Transmission Date: 20181010
  Serious: Yes (Other)
  Sender: FDA-Public Use
  Company Number: US-009507513-1806USA012165

PATIENT
  Age: 42 Year
  Sex: Male

DRUGS (4)
  1. STROMECTOL [Suspect]
     Active Substance: IVERMECTIN
     Indication: STRONGYLOIDIASIS
     Dosage: 200 MICROGRAM PER KILOGRAM/DAY (13MG), VIA NASOGASTRIC TUBE
     Route: 050
  2. DEXAMETHASONE. [Concomitant]
     Active Substance: DEXAMETHASONE
     Indication: ASTHMA
     Dosage: 6 MG, DAILY
     Route: 048
  3. STROMECTOL [Suspect]
     Active Substance: IVERMECTIN
     Dosage: RECTAL SUSPENSION RETENTION ENEMA; TALETS CRUSHED  AND SUSPENDED IN 30CC ^ORA?PLUS^
     Route: 054
  4. ALBENDAZOLE [Concomitant]
     Active Substance: ALBENDAZOLE
     Indication: STRONGYLOIDIASIS

REACTIONS (3)
  - Wrong technique in product usage process [Unknown]
  - Incorrect route of drug administration [Unknown]
  - Ileus paralytic [Unknown]
